FAERS Safety Report 10755572 (Version 1)
Quarter: 2015Q1

REPORT INFORMATION
  Report Type: Spontaneous
  Country: US (occurrence: None)
  Receive Date: 20150123
  Receipt Date: 20150123
  Transmission Date: 20150721
  Serious: Yes (Hospitalization, Other)
  Sender: FDA-Public Use
  Company Number: 2014TUS008253

PATIENT
  Age: 35 Year
  Sex: Female
  Weight: 46.3 kg

DRUGS (1)
  1. ENTYVIO [Suspect]
     Active Substance: VEDOLIZUMAB
     Indication: CROHN^S DISEASE
     Route: 042
     Dates: start: 20140818, end: 20140818

REACTIONS (4)
  - Pyrexia [None]
  - Heart rate increased [None]
  - Sepsis [None]
  - Diarrhoea [None]
